FAERS Safety Report 16061996 (Version 1)
Quarter: 2019Q2

REPORT INFORMATION
  Report Type: Spontaneous
  Country: US (occurrence: US)
  Receive Date: 20190312
  Receipt Date: 20190312
  Transmission Date: 20190711
  Serious: No
  Sender: FDA-Public Use
  Company Number: None

PATIENT
  Sex: Female

DRUGS (10)
  1. ASPIRIN. [Concomitant]
     Active Substance: ASPIRIN
  2. FENOFIBRATE. [Concomitant]
     Active Substance: FENOFIBRATE
  3. PRAVASTATIN. [Concomitant]
     Active Substance: PRAVASTATIN
  4. CLONIDINE. [Concomitant]
     Active Substance: CLONIDINE
  5. MAGNESIUM [Concomitant]
     Active Substance: MAGNESIUM
  6. METOCLOPRAM [Concomitant]
     Active Substance: METOCLOPRAMIDE
  7. ATENOLOL. [Concomitant]
     Active Substance: ATENOLOL
  8. SUTENT [Suspect]
     Active Substance: SUNITINIB MALATE
     Indication: PRODUCT USED FOR UNKNOWN INDICATION
     Route: 048
     Dates: start: 20190204
  9. LOSARTAN/HCT [Concomitant]
     Active Substance: HYDROCHLOROTHIAZIDE\LOSARTAN POTASSIUM
  10. POTASSIUM [Concomitant]
     Active Substance: POTASSIUM

REACTIONS (5)
  - Hypertension [None]
  - Hypokalaemia [None]
  - Nausea [None]
  - Vomiting [None]
  - Hypomagnesaemia [None]
